FAERS Safety Report 7366803-9 (Version None)
Quarter: 2011Q1

REPORT INFORMATION
  Report Type: 
  Country: None (occurrence: None)
  Receive Date: 20110322
  Receipt Date: 20110314
  Transmission Date: 20110831
  Serious: Yes (Hospitalization)
  Sender: FDA-Public Use
  Company Number: FR-ROCHE-765430

PATIENT
  Sex: Male

DRUGS (7)
  1. METHYLPREDNISOLONE [Concomitant]
     Indication: PREMEDICATION
     Dosage: FREQUENCY REPORTED AS ONCE
     Route: 042
  2. AVASTIN [Suspect]
     Dosage: FREQUENCY REPORTED BY COURSE
     Route: 042
     Dates: start: 20100611, end: 20101223
  3. FLUOROURACIL [Suspect]
     Dosage: FREQUENCY REPORTED AS BY COURSE
     Route: 040
     Dates: start: 20100611, end: 20101223
  4. CALCIUM FOLINATE [Suspect]
     Dosage: FREQUENCY REPORTED AS BY COURSE
     Route: 042
     Dates: start: 20100611, end: 20101223
  5. ZOPHREN [Concomitant]
     Indication: PREMEDICATION
     Dosage: FREQUECY AS ONCE
     Route: 042
  6. OXALIPLATIN [Suspect]
     Dosage: FREQUENCY REPORTED AS BY COURSE.
     Route: 042
     Dates: start: 20100611, end: 20101223
  7. FLUOROURACIL [Suspect]
     Dosage: DOSAGE 2400 MG/M2 BY DIFFUSER.
     Route: 040
     Dates: end: 20101223

REACTIONS (6)
  - TACHYCARDIA [None]
  - CHILLS [None]
  - PYREXIA [None]
  - THROMBOCYTOPENIA [None]
  - OXYGEN SATURATION DECREASED [None]
  - HYPERTENSION [None]
